FAERS Safety Report 11534153 (Version 1)
Quarter: 2015Q3

REPORT INFORMATION
  Report Type: Report from Study
  Country: DE (occurrence: DE)
  Receive Date: 20150922
  Receipt Date: 20150922
  Transmission Date: 20151125
  Serious: Yes (Death)
  Sender: FDA-Public Use
  Company Number: DE-ROCHE-1635003

PATIENT
  Age: 54 Year
  Sex: Male
  Weight: 75 kg

DRUGS (12)
  1. SPIRONOLACTON [Concomitant]
     Active Substance: SPIRONOLACTONE
     Route: 065
  2. PANTOZOL [Concomitant]
     Active Substance: PANTOPRAZOLE SODIUM
  3. ACTRAPID [Concomitant]
     Active Substance: INSULIN HUMAN
     Dosage: DEPENDS ON BLOOD SUGAR LEVEL
     Route: 065
  4. CARVEDILOL. [Concomitant]
     Active Substance: CARVEDILOL
     Route: 065
  5. LEVEMIR [Concomitant]
     Active Substance: INSULIN DETEMIR
     Route: 065
  6. RIBAVIRIN. [Suspect]
     Active Substance: RIBAVIRIN
     Indication: CHRONIC HEPATITIS C
     Route: 048
     Dates: start: 20150220, end: 20150315
  7. TOREM [Concomitant]
     Active Substance: TORSEMIDE
     Route: 065
  8. THIAMIN [Concomitant]
     Active Substance: THIAMINE
     Route: 065
  9. BIFITERAL [Concomitant]
     Active Substance: LACTULOSE
     Route: 065
  10. LEDIPASVIR/SOFOSBUVIR [Suspect]
     Active Substance: LEDIPASVIR\SOFOSBUVIR
     Indication: CHRONIC HEPATITIS C
     Route: 048
     Dates: start: 20150220, end: 20150315
  11. ALLOPURINOL. [Concomitant]
     Active Substance: ALLOPURINOL
     Route: 065
  12. ASPIRIN. [Concomitant]
     Active Substance: ASPIRIN
     Route: 065

REACTIONS (1)
  - Acute kidney injury [Fatal]

NARRATIVE: CASE EVENT DATE: 20150315
